FAERS Safety Report 5678059-3 (Version None)
Quarter: 2008Q1

REPORT INFORMATION
  Report Type: 
  Country: None (occurrence: None)
  Receive Date: 20080319
  Receipt Date: 20080219
  Transmission Date: 20080703
  Serious: Yes (Other)
  Sender: FDA-Public Use
  Company Number: 20520080235

PATIENT
  Age: 45 Year
  Sex: Female

DRUGS (4)
  1. SOMATULINA AUTOGEL 120MG (LANREOTIDE AUTOGEL) (LANREOTIDE ACETATE) [Suspect]
     Indication: ACROMEGALY
     Dosage: 120 MG (EVERY 28 DAYS) SUBCUTANEOUS
     Route: 058
  2. PEGVISOMANT [Suspect]
     Indication: ACROMEGALY
     Dosage: 60 MG (ONCE WEEKLY) SUBCUTANEOUS
     Route: 058
     Dates: start: 20080219
  3. ADOLONTA [Concomitant]
  4. IBUPROFEN [Concomitant]

REACTIONS (5)
  - DYSPNOEA [None]
  - HYPERSENSITIVITY [None]
  - NAUSEA [None]
  - RASH PAPULAR [None]
  - URTICARIA [None]
